FAERS Safety Report 4985520-3 (Version None)
Quarter: 2006Q2

REPORT INFORMATION
  Report Type: 
  Country: None (occurrence: None)
  Receive Date: 20060428
  Receipt Date: 20050816
  Transmission Date: 20061013
  Serious: No
  Sender: FDA-Public Use
  Company Number: US-GLAXOSMITHKLINE-A0570419A

PATIENT
  Age: 2 Year
  Sex: Female

DRUGS (3)
  1. FLOVENT [Suspect]
     Indication: ASTHMA
     Dosage: 88MCG VARIABLE DOSE
     Route: 055
     Dates: start: 20041107, end: 20050817
  2. ALBUTEROL SULFATE AUTOHALER [Concomitant]
     Indication: ASTHMA
     Route: 055
     Dates: start: 20041107
  3. XOPENEX [Concomitant]
     Indication: ASTHMA
     Route: 055
     Dates: start: 20041030

REACTIONS (1)
  - DRUG INEFFECTIVE [None]
